FAERS Safety Report 16104794 (Version 3)
Quarter: 2019Q3

REPORT INFORMATION
  Report Type: Report from Study
  Country: JP (occurrence: JP)
  Receive Date: 20190322
  Receipt Date: 20190730
  Transmission Date: 20191004
  Serious: Yes (Hospitalization)
  Sender: FDA-Public Use
  Company Number: JP-ELI_LILLY_AND_COMPANY-JP201903007856

PATIENT
  Age: 71 Year
  Sex: Female
  Weight: 38 kg

DRUGS (12)
  1. BACTRAMIN [Concomitant]
     Active Substance: SULFAMETHOXAZOLE\TRIMETHOPRIM
  2. SHAKUYAKUKANZOTO [Concomitant]
     Active Substance: HERBALS
  3. SENNOSIDA A + B [Concomitant]
  4. PREDONINE [Suspect]
     Active Substance: PREDNISOLONE
     Dosage: 10 MG, DAILY
     Route: 048
     Dates: start: 20190110, end: 20190226
  5. PREDONINE [Suspect]
     Active Substance: PREDNISOLONE
     Dosage: 12.5 MG, DAILY
     Route: 048
     Dates: start: 20181226, end: 20190110
  6. CELECOX [Concomitant]
     Active Substance: CELECOXIB
     Indication: RHEUMATOID ARTHRITIS
     Dosage: 200 MG, DAILY
  7. PREDONINE [Suspect]
     Active Substance: PREDNISOLONE
     Dosage: 7.5 MG, DAILY
     Route: 048
     Dates: start: 20190419, end: 20190630
  8. ALOSENN [SENNA SPP.] [Concomitant]
  9. BARICITINIB [Suspect]
     Active Substance: BARICITINIB
     Indication: RHEUMATOID ARTHRITIS
     Dosage: 2 MG, DAILY
     Route: 048
     Dates: start: 20181213, end: 20190228
  10. PREDONINE [Suspect]
     Active Substance: PREDNISOLONE
     Dosage: 9 MG, DAILY
     Route: 048
     Dates: start: 20190227, end: 20190418
  11. PREDONINE [Suspect]
     Active Substance: PREDNISOLONE
     Indication: RHEUMATOID ARTHRITIS
     Dosage: 15 MG, DAILY
     Route: 048
     Dates: end: 20181225
  12. LANSOPRAZOLE. [Concomitant]
     Active Substance: LANSOPRAZOLE

REACTIONS (2)
  - Femoral neck fracture [Recovering/Resolving]
  - Femoral neck fracture [Recovered/Resolved]

NARRATIVE: CASE EVENT DATE: 20190125
